FAERS Safety Report 14730550 (Version 6)
Quarter: 2018Q3

REPORT INFORMATION
  Report Type: Report from Study
  Country: AU (occurrence: AU)
  Receive Date: 20180406
  Receipt Date: 20180926
  Transmission Date: 20181010
  Serious: Yes (Other)
  Sender: FDA-Public Use
  Company Number: PHHY2017AU156766

PATIENT
  Sex: Female
  Weight: 64 kg

DRUGS (5)
  1. AMLODIPINE [Suspect]
     Active Substance: AMLODIPINE BESYLATE
     Indication: PRODUCT USED FOR UNKNOWN INDICATION
     Dosage: UNK
     Route: 065
     Dates: start: 20180912
  2. AVAPRO [Concomitant]
     Active Substance: IRBESARTAN
     Indication: PRODUCT USED FOR UNKNOWN INDICATION
     Route: 065
  3. GILENYA [Suspect]
     Active Substance: FINGOLIMOD HYDROCHLORIDE
     Indication: RELAPSING-REMITTING MULTIPLE SCLEROSIS
     Dosage: UNK
     Route: 048
  4. VITAMIN D [Concomitant]
     Active Substance: CHOLECALCIFEROL
     Indication: PRODUCT USED FOR UNKNOWN INDICATION
     Route: 065
  5. LYRICA [Concomitant]
     Active Substance: PREGABALIN
     Indication: PRODUCT USED FOR UNKNOWN INDICATION
     Dosage: 25 X2 AT NIGHT (PRE GILENYA, BUT DOSAGE HAS REDUCED POST GILENYA)
     Route: 065

REACTIONS (18)
  - Drug ineffective [Not Recovered/Not Resolved]
  - Multiple sclerosis relapse [Not Recovered/Not Resolved]
  - Neuralgia [Recovering/Resolving]
  - Blood pressure increased [Unknown]
  - Micturition urgency [Not Recovered/Not Resolved]
  - Asthenia [Recovering/Resolving]
  - Limb discomfort [Not Recovered/Not Resolved]
  - Urinary retention [Recovered/Resolved]
  - Fatigue [Unknown]
  - Eye haemorrhage [Unknown]
  - Mood altered [Unknown]
  - Headache [Not Recovered/Not Resolved]
  - Weight increased [Not Recovered/Not Resolved]
  - Erythema annulare [Not Recovered/Not Resolved]
  - Balance disorder [Recovering/Resolving]
  - White blood cell count decreased [Unknown]
  - Muscle spasticity [Not Recovered/Not Resolved]
  - Crying [Unknown]
